FAERS Safety Report 14184948 (Version 4)
Quarter: 2020Q1

REPORT INFORMATION
  Report Type: Report from Study
  Country: BR (occurrence: BR)
  Receive Date: 20171114
  Receipt Date: 20200124
  Transmission Date: 20200409
  Serious: Yes (Life-Threatening, Hospitalization, Other)
  Sender: FDA-Public Use
  Company Number: PHHY2017BR111989

PATIENT
  Age: 55 Year
  Sex: Female
  Weight: 86 kg

DRUGS (2)
  1. SANDOSTATIN LAR DEPOT [Suspect]
     Active Substance: OCTREOTIDE ACETATE
     Dosage: 20 MG
     Route: 065
     Dates: end: 20190629
  2. SANDOSTATIN LAR DEPOT [Suspect]
     Active Substance: OCTREOTIDE ACETATE
     Indication: ACROMEGALY
     Dosage: 2 DF, QMO (2 AMPOULES OF 20 MG), (EVERY 30 DAYS)
     Route: 030
     Dates: start: 201101, end: 201710

REACTIONS (22)
  - Abdominal adhesions [Recovering/Resolving]
  - Hernia [Unknown]
  - Diabetes mellitus [Unknown]
  - Mobility decreased [Unknown]
  - Injection site pain [Unknown]
  - Apparent death [Recovering/Resolving]
  - General physical health deterioration [Recovering/Resolving]
  - Depression [Unknown]
  - Speech disorder [Unknown]
  - Appendicitis [Unknown]
  - Bacterial infection [Unknown]
  - Cerebrovascular accident [Unknown]
  - Dysstasia [Unknown]
  - Wound [Recovering/Resolving]
  - Malaise [Unknown]
  - Abdominal pain [Recovering/Resolving]
  - Appendicitis perforated [Recovered/Resolved]
  - Infection [Unknown]
  - Hemiplegia [Unknown]
  - Impaired healing [Unknown]
  - Dysarthria [Recovering/Resolving]
  - Abdominal mass [Recovering/Resolving]

NARRATIVE: CASE EVENT DATE: 20171028
